FAERS Safety Report 7059511-5 (Version None)
Quarter: 2010Q4

REPORT INFORMATION
  Report Type: 
  Country: None (occurrence: None)
  Receive Date: 20101025
  Receipt Date: 20101011
  Transmission Date: 20110411
  Serious: Yes (Hospitalization)
  Sender: FDA-Public Use
  Company Number: HU-RANBAXY-2010RR-38840

PATIENT
  Age: 78 Year
  Sex: Male

DRUGS (2)
  1. CLARITHROMYCIN [Suspect]
     Indication: THROAT IRRITATION
     Dosage: 1000 MG, UNK
  2. TRAMADOL HYDROCHLORIDE [Suspect]
     Indication: RADICULAR PAIN
     Dosage: 25 MG, UNK

REACTIONS (2)
  - DRUG INTERACTION [None]
  - HALLUCINATIONS, MIXED [None]
